FAERS Safety Report 20852701 (Version 1)
Quarter: 2022Q2

REPORT INFORMATION
  Report Type: Spontaneous
  Country: US (occurrence: None)
  Receive Date: 20220519
  Receipt Date: 20220519
  Transmission Date: 20220721
  Serious: Yes (Hospitalization)
  Sender: FDA-Public Use
  Company Number: None

PATIENT
  Sex: Female
  Weight: 81.7 kg

DRUGS (1)
  1. TEMOZOLOMIDE [Suspect]
     Active Substance: TEMOZOLOMIDE

REACTIONS (6)
  - Confusional state [None]
  - Dizziness [None]
  - Dyskinesia [None]
  - Balance disorder [None]
  - Loss of consciousness [None]
  - Memory impairment [None]

NARRATIVE: CASE EVENT DATE: 20220508
